FAERS Safety Report 8854423 (Version 2)
Quarter: 2014Q3

REPORT INFORMATION
  Report Type: Report from Study
  Country: US (occurrence: US)
  Receive Date: 20121023
  Receipt Date: 20140820
  Transmission Date: 20150326
  Serious: Yes (Death)
  Sender: FDA-Public Use
  Company Number: US-ROCHE-1135882

PATIENT
  Sex: Male

DRUGS (1)
  1. XELODA [Suspect]
     Active Substance: CAPECITABINE
     Indication: OESOPHAGEAL CARCINOMA
     Dosage: EACH DOSE 3 TABLETS OF 500MG
     Route: 048
     Dates: start: 20101003

REACTIONS (2)
  - Disease progression [Fatal]
  - Cardio-respiratory arrest [Fatal]
